FAERS Safety Report 24950960 (Version 1)
Quarter: 2025Q1

REPORT INFORMATION
  Report Type: Report from Study
  Country: CR (occurrence: CR)
  Receive Date: 20250210
  Receipt Date: 20250210
  Transmission Date: 20250409
  Serious: Yes (Other)
  Sender: ALEXION PHARMACEUTICALS
  Company Number: CR-AstraZeneca-CH-00802184A

PATIENT

DRUGS (1)
  1. DAPAGLIFLOZIN [Suspect]
     Active Substance: DAPAGLIFLOZIN
     Indication: Blood glucose increased

REACTIONS (1)
  - Foot fracture [Unknown]
